FAERS Safety Report 12180391 (Version 1)
Quarter: 2016Q1

REPORT INFORMATION
  Report Type: Spontaneous
  Country: US (occurrence: US)
  Receive Date: 20160315
  Receipt Date: 20160315
  Transmission Date: 20160526
  Serious: Yes (Hospitalization, Other)
  Sender: FDA-Public Use
  Company Number: US-SHIRE-US201602690

PATIENT
  Sex: Male
  Weight: 83.45 kg

DRUGS (3)
  1. HUMIRA [Suspect]
     Active Substance: ADALIMUMAB
     Indication: CROHN^S DISEASE
     Dosage: 40 MG, 1X/2WKS
     Route: 058
     Dates: start: 2015
  2. PENTASA [Suspect]
     Active Substance: MESALAMINE
     Indication: CROHN^S DISEASE
     Dosage: UNK UNK, UNKNOWN
     Route: 048
     Dates: end: 201510
  3. 6-MP [Suspect]
     Active Substance: MERCAPTOPURINE
     Indication: CROHN^S DISEASE
     Dosage: UNK UNK, UNKNOWN
     Route: 065
     Dates: end: 201510

REACTIONS (8)
  - Dizziness [Unknown]
  - White blood cell count decreased [Unknown]
  - Dyspnoea [Unknown]
  - Rash pruritic [Not Recovered/Not Resolved]
  - Immunodeficiency [Unknown]
  - Asthenia [Unknown]
  - Rash [Not Recovered/Not Resolved]
  - Product use issue [Recovered/Resolved]

NARRATIVE: CASE EVENT DATE: 2015
